FAERS Safety Report 9712871 (Version 2)
Quarter: 2013Q4

REPORT INFORMATION
  Report Type: Spontaneous
  Country: CA (occurrence: CA)
  Receive Date: 20131126
  Receipt Date: 20131126
  Transmission Date: 20140711
  Serious: Yes (Other)
  Sender: FDA-Public Use
  Company Number: CA-PFIZER INC-2013313775

PATIENT
  Age: 44 Year
  Sex: Female
  Weight: 78.8 kg

DRUGS (1)
  1. SUTENT [Suspect]
     Indication: METASTATIC NEOPLASM
     Dosage: 50 MG, 4 WEEKS/6WEEKS
     Route: 048
     Dates: start: 201307, end: 20131108

REACTIONS (10)
  - Eyelid oedema [Unknown]
  - Mucosal inflammation [Unknown]
  - Oedema peripheral [Unknown]
  - Erythema [Unknown]
  - Fatigue [Unknown]
  - Memory impairment [Unknown]
  - Vision blurred [Unknown]
  - Lip oedema [Unknown]
  - Dyspnoea [Unknown]
  - Chest discomfort [Unknown]
